FAERS Safety Report 5936784-0 (Version None)
Quarter: 2008Q4

REPORT INFORMATION
  Report Type: 
  Country: None (occurrence: None)
  Receive Date: 20081029
  Receipt Date: 20081014
  Transmission Date: 20090506
  Serious: Yes (Other)
  Sender: FDA-Public Use
  Company Number: 2008S1016508

PATIENT
  Age: 44 Year
  Sex: Male
  Weight: 104.3273 kg

DRUGS (6)
  1. FENTANYL TRANSDERMAL SYSTEM [Suspect]
     Indication: BACK PAIN
     Dosage: 50 UG; EVERY HOUR; TRANSDERMAL
     Route: 062
     Dates: start: 20080701
  2. FENTANYL TRANSDERMAL SYSTEM [Suspect]
     Indication: PAIN
     Dosage: 50 UG; EVERY HOUR; TRANSDERMAL
     Route: 062
     Dates: start: 20080701
  3. LYRICA [Concomitant]
  4. AMBIEN CR [Concomitant]
  5. LEXAPRO [Concomitant]
  6. ZITHROMAX [Concomitant]

REACTIONS (7)
  - ABDOMINAL PAIN [None]
  - DRUG WITHDRAWAL SYNDROME [None]
  - FEELING HOT [None]
  - HYPERHIDROSIS [None]
  - NAUSEA [None]
  - PRODUCT QUALITY ISSUE [None]
  - VOMITING [None]
